FAERS Safety Report 20306558 (Version 1)
Quarter: 2022Q1

REPORT INFORMATION
  Report Type: Spontaneous
  Country: None (occurrence: US)
  Receive Date: 20220106
  Receipt Date: 20220106
  Transmission Date: 20220423
  Serious: Yes (Other)
  Sender: FDA-Public Use
  Company Number: US-Time-Cap Labs, Inc.-2123689

PATIENT
  Sex: Male

DRUGS (1)
  1. SENNOSIDES [Suspect]
     Active Substance: SENNOSIDES
     Route: 048

REACTIONS (2)
  - Swollen tongue [Recovering/Resolving]
  - Hypertension [Recovering/Resolving]

NARRATIVE: CASE EVENT DATE: 20210705
